FAERS Safety Report 8662640 (Version 2)
Quarter: 2012Q4

REPORT INFORMATION
  Report Type: 
  Country: NO (occurrence: NO)
  Receive Date: 20120712
  Receipt Date: 20121019
  Transmission Date: 20130627
  Serious: Yes (Death)
  Sender: FDA-Public Use
  Company Number: NO-ROXANE LABORATORIES, INC.-2012-RO-01523RO

PATIENT
  Age: 55 Year
  Sex: Male

DRUGS (4)
  1. DIAZEPAM [Suspect]
  2. PARACETAMOL/CODEINE [Suspect]
  3. OXAZEPAM [Suspect]
  4. CARBAMAZEPINE [Suspect]

REACTIONS (1)
  - Toxicity to various agents [Fatal]
